FAERS Safety Report 8348867-9 (Version None)
Quarter: 2012Q2

REPORT INFORMATION
  Report Type: 
  Country: None (occurrence: None)
  Receive Date: 20120508
  Receipt Date: 20120424
  Transmission Date: 20120825
  Serious: Yes (Other)
  Sender: FDA-Public Use
  Company Number: JPI-P-021103

PATIENT
  Age: 47 Year
  Sex: Female
  Weight: 72.5755 kg

DRUGS (2)
  1. XYREM [Suspect]
     Indication: NARCOLEPSY
     Dosage: 7.5 GM (3.75 GM, 2 IN 1 D) ORAL
     Route: 048
     Dates: start: 20110101
  2. XYREM [Suspect]
     Indication: SOMNOLENCE
     Dosage: 7.5 GM (3.75 GM, 2 IN 1 D) ORAL
     Route: 048
     Dates: start: 20110101

REACTIONS (6)
  - BARRETT'S OESOPHAGUS [None]
  - GASTROOESOPHAGEAL REFLUX DISEASE [None]
  - DIARRHOEA [None]
  - WEIGHT DECREASED [None]
  - IMPAIRED GASTRIC EMPTYING [None]
  - GASTRIC DISORDER [None]
